FAERS Safety Report 9034876 (Version 1)
Quarter: 2013Q1

REPORT INFORMATION
  Report Type: Spontaneous
  Country: DK (occurrence: None)
  Receive Date: 20130116
  Receipt Date: 20130116
  Transmission Date: 20140127
  Serious: Yes (Hospitalization)
  Sender: FDA-Public Use
  Company Number: 2013MA000232

PATIENT
  Age: 72 Year
  Sex: Male

DRUGS (8)
  1. BUTALBIAL, ASPIRIN AND CAFFEINE TABLETS USP, 50 MG/325 MG/ 40 MG (PUREPAC) (BITALBITAL W/ASPIRIN, CAFFINE) [Suspect]
     Indication: ISCHAEMIC HEART DISEASE PROPHYLAXIS
     Route: 048
     Dates: start: 20120626
  2. CLOPIDOGREL (CLOPIDOGREL) [Suspect]
     Route: 048
     Dates: start: 20120626
  3. OMERPAZOLE [Concomitant]
  4. PERINDOPRIL [Concomitant]
  5. ATORVASTATIN [Concomitant]
  6. BISOPROLOL [Concomitant]
  7. FERROUS SULPHATE [Concomitant]
  8. FUROSEMIDE [Concomitant]

REACTIONS (5)
  - Anaemia [None]
  - Chest pain [None]
  - Oesophagitis [None]
  - Gastrointestinal telangiectasia [None]
  - Large intestine polyp [None]
